FAERS Safety Report 6502165-4 (Version None)
Quarter: 2009Q4

REPORT INFORMATION
  Report Type: 
  Country: None (occurrence: None)
  Receive Date: 20091216
  Receipt Date: 20090923
  Transmission Date: 20100525
  Serious: No
  Sender: FDA-Public Use
  Company Number: US-ABBOTT-09P-163-0599430-00

PATIENT
  Age: 39 Year
  Sex: Male

DRUGS (2)
  1. TRILIPIX [Suspect]
     Indication: BLOOD TRIGLYCERIDES INCREASED
     Dates: start: 20090901
  2. ZITHROMAX [Suspect]
     Indication: PHARYNGITIS STREPTOCOCCAL
     Dates: start: 20090901

REACTIONS (2)
  - PHARYNGITIS STREPTOCOCCAL [None]
  - RASH [None]
